FAERS Safety Report 25131721 (Version 6)
Quarter: 2025Q4

REPORT INFORMATION
  Report Type: Spontaneous
  Country: EU (occurrence: EU)
  Receive Date: 20250327
  Receipt Date: 20251126
  Transmission Date: 20260118
  Serious: Yes (Other)
  Sender: NOVARTIS
  Company Number: EU-002147023-NVSC2025CZ048348

PATIENT
  Sex: Female

DRUGS (28)
  1. IMATINIB [Suspect]
     Active Substance: IMATINIB
     Indication: Chronic myeloid leukaemia
     Dosage: 400 MG, QD
     Route: 065
     Dates: start: 200604
  2. IMATINIB [Suspect]
     Active Substance: IMATINIB
     Dosage: UNK (REDUCED)
     Route: 065
  3. IMATINIB [Suspect]
     Active Substance: IMATINIB
     Dosage: UNK
     Route: 065
     Dates: start: 2006, end: 200606
  4. IMATINIB [Suspect]
     Active Substance: IMATINIB
     Dosage: UNK
     Route: 065
     Dates: start: 2006, end: 200609
  5. IMATINIB [Suspect]
     Active Substance: IMATINIB
     Dosage: UNK
     Route: 065
     Dates: start: 2006, end: 200704
  6. IMATINIB [Suspect]
     Active Substance: IMATINIB
     Dosage: UNK (DOSE CHANGED)
     Route: 065
  7. IMATINIB [Suspect]
     Active Substance: IMATINIB
     Dosage: 600 MG, QD
     Route: 065
     Dates: end: 201003
  8. IMATINIB [Suspect]
     Active Substance: IMATINIB
     Dosage: UNK (DISCONTINUED)
     Route: 065
     Dates: end: 201103
  9. IMATINIB [Suspect]
     Active Substance: IMATINIB
     Dosage: UNK
     Route: 065
     Dates: start: 2011, end: 201104
  10. IMATINIB [Suspect]
     Active Substance: IMATINIB
     Dosage: UNK
     Route: 065
     Dates: end: 201104
  11. IMATINIB [Suspect]
     Active Substance: IMATINIB
     Dosage: 600 MG, QD
     Route: 065
     Dates: end: 201007
  12. IMATINIB [Suspect]
     Active Substance: IMATINIB
     Dosage: 600 MG, QD
     Route: 065
     Dates: end: 201104
  13. IMATINIB [Suspect]
     Active Substance: IMATINIB
     Dosage: 300 MG
     Route: 065
     Dates: start: 201205
  14. IMATINIB [Suspect]
     Active Substance: IMATINIB
     Dosage: UNK (INCREASED)
     Route: 065
     Dates: end: 201306
  15. NILOTINIB [Suspect]
     Active Substance: NILOTINIB
     Indication: Chronic myeloid leukaemia
     Dosage: 600 MG, QD
     Route: 065
     Dates: start: 201104
  16. NILOTINIB [Suspect]
     Active Substance: NILOTINIB
     Dosage: UNK (REDUCED)
     Route: 065
     Dates: end: 201205
  17. NILOTINIB [Suspect]
     Active Substance: NILOTINIB
     Dosage: 400 MG, QD
     Route: 065
     Dates: start: 202005
  18. NILOTINIB [Suspect]
     Active Substance: NILOTINIB
     Dosage: 800 MG, QD
     Route: 065
  19. NILOTINIB [Suspect]
     Active Substance: NILOTINIB
     Dosage: UNK (REDUCED)
     Route: 065
     Dates: end: 202401
  20. NILOTINIB [Suspect]
     Active Substance: NILOTINIB
     Dosage: 400 MG, QD
     Route: 065
     Dates: end: 202401
  21. DASATINIB [Suspect]
     Active Substance: DASATINIB
     Indication: Chronic myeloid leukaemia
     Dosage: 90 MG, QD
     Route: 065
     Dates: start: 201306, end: 201602
  22. DASATINIB [Suspect]
     Active Substance: DASATINIB
     Dosage: 70 MG, QD
     Route: 065
     Dates: start: 201605, end: 201905
  23. DASATINIB [Suspect]
     Active Substance: DASATINIB
     Dosage: UNK
     Route: 065
     Dates: end: 202005
  24. ASCIMINIB [Suspect]
     Active Substance: ASCIMINIB
     Indication: Chronic myeloid leukaemia
     Dosage: 80 MG, BID
     Route: 065
     Dates: start: 202404
  25. PONATINIB [Suspect]
     Active Substance: PONATINIB
     Indication: Chronic myeloid leukaemia
     Dosage: 15 MG, QD
     Route: 065
     Dates: start: 202401, end: 202402
  26. PONATINIB [Suspect]
     Active Substance: PONATINIB
     Dosage: 45 MG, QD
     Route: 065
     Dates: start: 202402, end: 2024
  27. PONATINIB [Suspect]
     Active Substance: PONATINIB
     Dosage: UNK
     Route: 065
  28. PONATINIB [Suspect]
     Active Substance: PONATINIB
     Dosage: UNK (REDUCED)
     Route: 065
     Dates: end: 202404

REACTIONS (17)
  - Chronic myeloid leukaemia [Unknown]
  - Malignant neoplasm progression [Unknown]
  - Peritonitis [Unknown]
  - Haematotoxicity [Recovered/Resolved]
  - Thrombocytopenia [Recovered/Resolved]
  - Large intestine perforation [Recovered/Resolved]
  - Pleural effusion [Recovered/Resolved]
  - Pleural effusion [Recovered/Resolved]
  - Ileus [Recovered/Resolved]
  - Neuropathy peripheral [Recovering/Resolving]
  - Vaginal haemorrhage [Recovered/Resolved]
  - Gastrointestinal tract irritation [Recovered/Resolved]
  - Nausea [Unknown]
  - Vomiting [Unknown]
  - Hypertension [Recovered/Resolved]
  - Dermatitis allergic [Unknown]
  - Treatment failure [Unknown]

NARRATIVE: CASE EVENT DATE: 20060101
